FAERS Safety Report 14501862 (Version 1)
Quarter: 2018Q1

REPORT INFORMATION
  Report Type: Spontaneous
  Country: IT (occurrence: IT)
  Receive Date: 20180207
  Receipt Date: 20180207
  Transmission Date: 20180509
  Serious: Yes (Other)
  Sender: FDA-Public Use
  Company Number: IT-MYLANLABS-2018M1007724

PATIENT
  Sex: Male
  Weight: 73 kg

DRUGS (2)
  1. PREDNISONE. [Suspect]
     Active Substance: PREDNISONE
     Indication: SUPPLEMENTATION THERAPY
     Dosage: 10 MG/KG, UNK
  2. ABIRATERONE [Interacting]
     Active Substance: ABIRATERONE
     Indication: HORMONE-REFRACTORY PROSTATE CANCER
     Dosage: UNK

REACTIONS (2)
  - Acquired apparent mineralocorticoid excess [Recovered/Resolved]
  - Drug interaction [Recovered/Resolved]
